FAERS Safety Report 7328746-6 (Version None)
Quarter: 2011Q1

REPORT INFORMATION
  Report Type: 
  Country: None (occurrence: None)
  Receive Date: 20110303
  Receipt Date: 20110218
  Transmission Date: 20110831
  Serious: Yes (Other)
  Sender: FDA-Public Use
  Company Number: PHHY2011US14244

PATIENT
  Sex: Female

DRUGS (5)
  1. NEXIUM [Concomitant]
  2. ANTIBIOTICS [Concomitant]
  3. EXFORGE HCT [Suspect]
     Dosage: 1 XDAY
  4. COUGH SYRUP [Concomitant]
  5. INDERAL [Concomitant]
     Dosage: 80 MG,

REACTIONS (2)
  - SINUSITIS [None]
  - LARYNGITIS [None]
